FAERS Safety Report 6274227-0 (Version None)
Quarter: 2009Q3

REPORT INFORMATION
  Report Type: 
  Country: None (occurrence: None)
  Receive Date: 20090720
  Receipt Date: 20090625
  Transmission Date: 20100115
  Serious: Yes (Other)
  Sender: FDA-Public Use
  Company Number: AR-PFIZER INC-2007052094

PATIENT
  Age: 29 Year

DRUGS (7)
  1. BLINDED *EFAVIRENZ [Suspect]
     Indication: HIV TEST POSITIVE
     Dosage: 300 MG, 2X/DAY
     Route: 048
     Dates: start: 20060403
  2. BLINDED *NO SUBJECT DRUG [Suspect]
     Indication: HIV TEST POSITIVE
     Dosage: 300 MG, 2X/DAY
     Route: 048
     Dates: start: 20060403
  3. BLINDED *PLACEBO [Suspect]
     Indication: HIV TEST POSITIVE
     Dosage: 300 MG, 2X/DAY
     Route: 048
     Dates: start: 20060403
  4. BLINDED MARAVIROC [Suspect]
     Indication: HIV TEST POSITIVE
     Dosage: 300 MG, 2X/DAY
     Route: 048
     Dates: start: 20060403
  5. FLUOXETINE HCL [Concomitant]
     Indication: DEPRESSION
     Dates: start: 20070511
  6. VALPROIC ACID [Concomitant]
     Indication: DEPRESSION
  7. CONTRACEPTIVE, UNSPECIFIED [Concomitant]

REACTIONS (1)
  - VULVAL CANCER [None]
